FAERS Safety Report 16775102 (Version 1)
Quarter: 2019Q3

REPORT INFORMATION
  Report Type: Spontaneous
  Country: US (occurrence: US)
  Receive Date: 20190715
  Receipt Date: 20190715
  Transmission Date: 20191005
  Serious: Yes (Death)
  Sender: FDA-Public Use
  Company Number: None

PATIENT
  Age: 70 Year
  Sex: Male
  Weight: 90 kg

DRUGS (2)
  1. CLOPIDOGREL [Suspect]
     Active Substance: CLOPIDOGREL BISULFATE
     Indication: VASCULAR OPERATION
     Dates: start: 20080301
  2. WARFARIN [Suspect]
     Active Substance: WARFARIN
     Indication: VASCULAR OPERATION
     Dates: start: 20130101

REACTIONS (2)
  - Haemorrhage intracranial [None]
  - Blood pressure systolic increased [None]

NARRATIVE: CASE EVENT DATE: 20190706
